FAERS Safety Report 15696448 (Version 1)
Quarter: 2018Q4

REPORT INFORMATION
  Report Type: Spontaneous
  Country: US (occurrence: US)
  Receive Date: 20181206
  Receipt Date: 20181206
  Transmission Date: 20190205
  Serious: No
  Sender: FDA-Public Use
  Company Number: US-009507513-1812USA003279

PATIENT
  Age: 71 Year
  Sex: Male

DRUGS (4)
  1. BELSOMRA [Suspect]
     Active Substance: SUVOREXANT
     Dosage: 20 MILLIGRAM, QPM
     Route: 048
     Dates: start: 20181204, end: 20181204
  2. ATORVASTATIN [Concomitant]
     Active Substance: ATORVASTATIN
  3. VIAGRA [Concomitant]
     Active Substance: SILDENAFIL CITRATE
  4. BELSOMRA [Suspect]
     Active Substance: SUVOREXANT
     Indication: INSOMNIA
     Dosage: 10 MILLIGRAM, QPM
     Route: 048
     Dates: start: 20181203, end: 20181203

REACTIONS (2)
  - Overdose [Unknown]
  - Drug ineffective [Not Recovered/Not Resolved]

NARRATIVE: CASE EVENT DATE: 20181203
